FAERS Safety Report 6025455-0 (Version None)
Quarter: 2008Q4

REPORT INFORMATION
  Report Type: 
  Country: None (occurrence: None)
  Receive Date: 20081229
  Receipt Date: 20081229
  Transmission Date: 20090506
  Serious: No
  Sender: FDA-Public Use
  Company Number: None

PATIENT
  Age: 62 Year
  Sex: Female
  Weight: 111.1313 kg

DRUGS (5)
  1. LEVAQUIN [Suspect]
     Indication: DIVERTICULITIS
     Dosage: 500 MG 1/DAY PO
     Route: 048
     Dates: start: 20081123, end: 20081225
  2. LUVOX CR [Concomitant]
  3. INSULIN [Concomitant]
  4. MABEC [Concomitant]
  5. SYNVISC [Concomitant]

REACTIONS (12)
  - ANXIETY [None]
  - ARTHRALGIA [None]
  - BLOOD GLUCOSE INCREASED [None]
  - CRYING [None]
  - DEPRESSION [None]
  - FATIGUE [None]
  - NIGHTMARE [None]
  - PAIN [None]
  - POVERTY OF THOUGHT CONTENT [None]
  - SLEEP DISORDER [None]
  - SUICIDAL IDEATION [None]
  - TINNITUS [None]
